FAERS Safety Report 12594865 (Version 5)
Quarter: 2016Q4

REPORT INFORMATION
  Report Type: Report from Study
  Country: BR (occurrence: BR)
  Receive Date: 20160726
  Receipt Date: 20161117
  Transmission Date: 20170207
  Serious: Yes (Other)
  Sender: FDA-Public Use
  Company Number: PHHY2016BR101539

PATIENT
  Sex: Female
  Weight: 69 kg

DRUGS (1)
  1. FORASEQ [Suspect]
     Active Substance: BUDESONIDE\FORMOTEROL FUMARATE
     Indication: ASTHMA
     Dosage: BID (BUDESONIDE 400 MCG, FORMOTEROL FUMARATE 12 MCG)
     Route: 055
     Dates: start: 1996

REACTIONS (4)
  - Device issue [Unknown]
  - Cataract [Recovering/Resolving]
  - Hypertension [Recovering/Resolving]
  - Glaucoma [Recovering/Resolving]

NARRATIVE: CASE EVENT DATE: 1996
